FAERS Safety Report 7400440-2 (Version None)
Quarter: 2011Q2

REPORT INFORMATION
  Report Type: 
  Country: None (occurrence: None)
  Receive Date: 20110407
  Receipt Date: 20110225
  Transmission Date: 20111010
  Serious: Yes (Hospitalization, Other)
  Sender: FDA-Public Use
  Company Number: US-BAXTER-2008BH002487

PATIENT
  Age: 39 Year
  Sex: Female
  Weight: 50 kg

DRUGS (18)
  1. HEPARIN SODIUM INJECTION [Suspect]
     Route: 042
     Dates: start: 20080101
  2. DILAUDID [Concomitant]
     Indication: PRODUCT USED FOR UNKNOWN INDICATION
     Route: 042
  3. MAGNESIUM OXIDE [Concomitant]
     Indication: HYPOMAGNESAEMIA
     Route: 065
  4. LOVENOX [Suspect]
     Indication: PRODUCT USED FOR UNKNOWN INDICATION
     Route: 065
  5. HEPARIN SODIUM INJECTION [Suspect]
     Indication: COLONOSCOPY
     Route: 058
     Dates: start: 20080101, end: 20080201
  6. HEPARIN SODIUM INJECTION [Suspect]
     Route: 058
     Dates: start: 20080130
  7. HEPARIN SODIUM INJECTION [Suspect]
     Route: 058
     Dates: start: 20080131, end: 20080203
  8. HEPARIN SODIUM INJECTION [Suspect]
     Indication: ENDOSCOPY
     Route: 058
     Dates: start: 20080101, end: 20080201
  9. MORPHINE [Concomitant]
     Indication: MIGRAINE
     Route: 065
     Dates: start: 20080101
  10. EFFEXOR XR [Concomitant]
     Indication: PRODUCT USED FOR UNKNOWN INDICATION
     Route: 065
  11. RIZATRIPTAN [Concomitant]
     Indication: PRODUCT USED FOR UNKNOWN INDICATION
     Route: 065
  12. VITAMIN D [Concomitant]
     Indication: HYPOCALCAEMIA
     Route: 065
  13. HEPARIN SODIUM INJECTION [Suspect]
     Route: 058
     Dates: start: 20080130
  14. HEPARIN SODIUM INJECTION [Suspect]
     Route: 058
     Dates: start: 20080131, end: 20080203
  15. HEPARIN SODIUM INJECTION [Suspect]
     Route: 042
     Dates: start: 20080101
  16. SEROQUEL [Concomitant]
     Indication: PRODUCT USED FOR UNKNOWN INDICATION
     Route: 065
  17. KLONOPIN [Concomitant]
     Indication: PRODUCT USED FOR UNKNOWN INDICATION
     Route: 065
  18. BENADRYL [Concomitant]
     Indication: PRODUCT USED FOR UNKNOWN INDICATION
     Route: 065

REACTIONS (37)
  - PLEURAL EFFUSION [None]
  - HYPOTENSION [None]
  - DYSPNOEA [None]
  - HAEMATOCHEZIA [None]
  - VISION BLURRED [None]
  - NEPHROPATHY [None]
  - HEPARIN-INDUCED THROMBOCYTOPENIA [None]
  - BLOOD POTASSIUM DECREASED [None]
  - SYNCOPE [None]
  - ASTHENIA [None]
  - ABDOMINAL PAIN UPPER [None]
  - DIARRHOEA [None]
  - DECREASED APPETITE [None]
  - MENORRHAGIA [None]
  - OLIGOMENORRHOEA [None]
  - CHEST PAIN [None]
  - BLOOD CALCIUM DECREASED [None]
  - MUCOUS STOOLS [None]
  - ANAEMIA [None]
  - MUSCLE SPASMS [None]
  - ABDOMINAL DISTENSION [None]
  - THROMBOPHLEBITIS SUPERFICIAL [None]
  - DEEP VEIN THROMBOSIS [None]
  - COAGULOPATHY [None]
  - BLOOD MAGNESIUM DECREASED [None]
  - PRESYNCOPE [None]
  - PYREXIA [None]
  - MIGRAINE [None]
  - DIZZINESS [None]
  - OTITIS MEDIA [None]
  - PRODUCTIVE COUGH [None]
  - NAUSEA [None]
  - METABOLIC SYNDROME [None]
  - DEHYDRATION [None]
  - VOMITING [None]
  - RASH GENERALISED [None]
  - GASTROENTERITIS [None]
